FAERS Safety Report 19184050 (Version 2)
Quarter: 2025Q3

REPORT INFORMATION
  Report Type: Spontaneous
  Country: EU (occurrence: EU)
  Receive Date: 20210427
  Receipt Date: 20250704
  Transmission Date: 20251021
  Serious: Yes (Other)
  Sender: AUROBINDO
  Company Number: EU-ARISTO PHARMA-IMAT202005063

PATIENT
  Age: 12 Year
  Sex: Female

DRUGS (5)
  1. IMATINIB [Suspect]
     Active Substance: IMATINIB
     Indication: Chronic myeloid leukaemia
     Dosage: 200 MILLIGRAM, ONCE A DAY (INITIAL DOSE, INTERRUPT THE TREATMENT FOR A TOTAL OF 3 WEEKS PRIOR)
     Route: 065
  2. IMATINIB [Suspect]
     Active Substance: IMATINIB
     Route: 065
     Dates: start: 201807
  3. PRIORIX [Suspect]
     Active Substance: MEASLES-MUMPS-RUBELLA VIRUS VACCINE
     Indication: Immunisation
     Route: 065
     Dates: start: 201605
  4. PRIORIX [Suspect]
     Active Substance: MEASLES-MUMPS-RUBELLA VIRUS VACCINE
     Route: 065
     Dates: start: 201703
  5. DASATINIB [Concomitant]
     Active Substance: DASATINIB
     Indication: Product used for unknown indication
     Route: 065

REACTIONS (3)
  - Immunosuppression [Recovered/Resolved]
  - Vaccination failure [Recovered/Resolved]
  - Seroconversion test negative [Recovered/Resolved]
